FAERS Safety Report 22540964 (Version 3)
Quarter: 2024Q1

REPORT INFORMATION
  Report Type: Spontaneous
  Country: US (occurrence: US)
  Receive Date: 20230609
  Receipt Date: 20240322
  Transmission Date: 20240410
  Serious: Yes (Other)
  Sender: FDA-Public Use
  Company Number: US-PFIZER INC-PV202300100136

PATIENT
  Age: 70 Year
  Sex: Female
  Weight: 90.703 kg

DRUGS (17)
  1. IBRANCE [Suspect]
     Active Substance: PALBOCICLIB
     Indication: Neoplasm malignant
     Dosage: 100 MG
     Dates: start: 202305, end: 20240113
  2. AMLODIPINE [Concomitant]
     Active Substance: AMLODIPINE BESYLATE
     Dosage: 1 DAILY
  3. CALCIUM [Concomitant]
     Active Substance: CALCIUM
     Dosage: 1 DAILY
  4. MINERALS\VITAMINS [Concomitant]
     Active Substance: MINERALS\VITAMINS
     Dosage: 1 DAILY
  5. COENZYME Q10 [Concomitant]
     Active Substance: DIETARY SUPPLEMENT\UBIDECARENONE
     Dosage: 1 DAILY
  6. DULOXETINE [Concomitant]
     Active Substance: DULOXETINE
     Dosage: 1 DAILY
  7. EXEMESTANE [Concomitant]
     Active Substance: EXEMESTANE
     Dosage: 1 DAILY
  8. GABAPENTIN [Concomitant]
     Active Substance: GABAPENTIN
     Dosage: 3 DAILY
  9. HYDROCHLOROTHIAZIDE [Concomitant]
     Active Substance: HYDROCHLOROTHIAZIDE
     Dosage: 1 DAILY
  10. LEVOTHYROXINE [Concomitant]
     Active Substance: LEVOTHYROXINE\LEVOTHYROXINE SODIUM
     Dosage: 1 DAILY
  11. LOSARTAN POTASSIUM [Concomitant]
     Active Substance: LOSARTAN POTASSIUM
     Dosage: 1 DAILY
  12. POTASSIUM CHLORIDE [Concomitant]
     Active Substance: POTASSIUM CHLORIDE
     Dosage: 1 DAILY
  13. ROSUVASTATIN [Concomitant]
     Active Substance: ROSUVASTATIN
     Dosage: 1 DAILY
  14. TRULICITY [Concomitant]
     Active Substance: DULAGLUTIDE
     Dosage: 0.5 ML - INJECTION - 1 WEEKLY
  15. VITAMIN B12 [Concomitant]
     Active Substance: CYANOCOBALAMIN
     Dosage: 1 DAILY
  16. VITAMIN D3 [Concomitant]
     Active Substance: CHOLECALCIFEROL
     Dosage: 1 DAILY
  17. ZOMETA [Concomitant]
     Active Substance: ZOLEDRONIC ACID
     Dosage: UNK, CYCLIC

REACTIONS (7)
  - Haemoglobin decreased [Recovered/Resolved]
  - Full blood count abnormal [Recovered/Resolved]
  - Gastric antral vascular ectasia [Unknown]
  - Eating disorder [Recovered/Resolved]
  - Constipation [Recovered/Resolved]
  - Dysuria [Recovered/Resolved]
  - Malaise [Recovered/Resolved]

NARRATIVE: CASE EVENT DATE: 20240101
